FAERS Safety Report 6200150-3 (Version None)
Quarter: 2009Q2

REPORT INFORMATION
  Report Type: 
  Country: None (occurrence: None)
  Receive Date: 20090522
  Receipt Date: 20090514
  Transmission Date: 20091009
  Serious: Yes (Other)
  Sender: FDA-Public Use
  Company Number: JP-JNJFOC-20090503523

PATIENT

DRUGS (2)
  1. DUROTEP [Suspect]
     Indication: DRUG USE FOR UNKNOWN INDICATION
     Route: 062
  2. UNKNOWN MEDICATION [Concomitant]

REACTIONS (1)
  - PSYCHIATRIC SYMPTOM [None]
